FAERS Safety Report 9947140 (Version 1)
Quarter: 2014Q1

REPORT INFORMATION
  Report Type: Report from Study
  Country: US (occurrence: US)
  Receive Date: 20140303
  Receipt Date: 20140303
  Transmission Date: 20141002
  Serious: No
  Sender: FDA-Public Use
  Company Number: US-ABBVIE-13P-163-1064686-00

PATIENT
  Age: 33 Year
  Sex: Male

DRUGS (3)
  1. HUMIRA [Suspect]
     Indication: PSORIASIS
     Dates: start: 201011, end: 201108
  2. ADVIL [Concomitant]
     Indication: PAIN
     Route: 048
  3. TYLENOL [Concomitant]
     Indication: PAIN
     Route: 048

REACTIONS (8)
  - Arthropod bite [Recovered/Resolved]
  - Skin irritation [Recovered/Resolved]
  - Hallucination, auditory [Recovered/Resolved]
  - Aphasia [Recovered/Resolved]
  - Musculoskeletal stiffness [Recovered/Resolved]
  - Weight bearing difficulty [Recovered/Resolved]
  - Infected bites [Recovered/Resolved]
  - Oedema peripheral [Recovered/Resolved]
